FAERS Safety Report 19462661 (Version 5)
Quarter: 2021Q3

REPORT INFORMATION
  Report Type: Report from Study
  Country: US (occurrence: US)
  Receive Date: 20210625
  Receipt Date: 20210901
  Transmission Date: 20211014
  Serious: No
  Sender: FDA-Public Use
  Company Number: NVSC2021US137239

PATIENT
  Sex: Female

DRUGS (2)
  1. GABAPENTIN. [Concomitant]
     Active Substance: GABAPENTIN
     Indication: PRODUCT USED FOR UNKNOWN INDICATION
     Dosage: UNK
     Route: 065
  2. KESIMPTA [Suspect]
     Active Substance: OFATUMUMAB
     Indication: MULTIPLE SCLEROSIS
     Dosage: 20 MG
     Route: 058
     Dates: start: 20210608

REACTIONS (6)
  - Nervousness [Unknown]
  - Chills [Unknown]
  - Hypoaesthesia [Recovered/Resolved]
  - Pyrexia [Recovered/Resolved]
  - Anxiety [Unknown]
  - Influenza like illness [Recovered/Resolved]
